FAERS Safety Report 4789375-1 (Version None)
Quarter: 2005Q3

REPORT INFORMATION
  Report Type: 
  Country: None (occurrence: None)
  Receive Date: 20050929
  Receipt Date: 20050801
  Transmission Date: 20060218
  Serious: No
  Sender: FDA-Public Use
  Company Number: 05P-163-0307154-00

PATIENT
  Age: 59 Year
  Sex: Female
  Weight: 51.2565 kg

DRUGS (6)
  1. HUMIRA [Suspect]
     Indication: RHEUMATOID ARTHRITIS
     Dosage: 40 MG, 1 IN 2 WK, SUBCUTANEOUS
     Route: 058
     Dates: start: 20050712
  2. METHOTREXATE [Concomitant]
  3. LOSARTAN POTASSIUM [Concomitant]
  4. ATORVASTATIN [Concomitant]
  5. FOLIC ACID [Concomitant]
  6. AMLODIPINE BESYLATE [Concomitant]

REACTIONS (5)
  - CHEST PAIN [None]
  - DIZZINESS [None]
  - JOINT SWELLING [None]
  - NERVOUSNESS [None]
  - RASH GENERALISED [None]
